FAERS Safety Report 8383896-0 (Version None)
Quarter: 2012Q2

REPORT INFORMATION
  Report Type: 
  Country: None (occurrence: None)
  Receive Date: 20120524
  Receipt Date: 20120425
  Transmission Date: 20120825
  Serious: Yes (Hospitalization, Other)
  Sender: FDA-Public Use
  Company Number: US-ROCHE-1051103

PATIENT
  Sex: Female
  Weight: 69.916 kg

DRUGS (2)
  1. XELODA [Suspect]
     Indication: BREAST CANCER METASTATIC
     Route: 048
     Dates: start: 20120129, end: 20120209
  2. ARANESP [Concomitant]
     Indication: FULL BLOOD COUNT DECREASED
     Route: 058
     Dates: start: 20120312, end: 20120312

REACTIONS (9)
  - DIABETES MELLITUS INADEQUATE CONTROL [None]
  - BLOOD COUNT ABNORMAL [None]
  - MUCOSAL INFLAMMATION [None]
  - STOMATITIS [None]
  - DEHYDRATION [None]
  - PANCYTOPENIA [None]
  - WEIGHT DECREASED [None]
  - ANAEMIA [None]
  - DECREASED APPETITE [None]
